FAERS Safety Report 7152778-4 (Version None)
Quarter: 2010Q4

REPORT INFORMATION
  Report Type: 
  Country: None (occurrence: None)
  Receive Date: 20101213
  Receipt Date: 20101202
  Transmission Date: 20110411
  Serious: Yes (Other)
  Sender: FDA-Public Use
  Company Number: US-PFIZER INC-2010163755

PATIENT
  Sex: Male

DRUGS (1)
  1. PREPARATION H HEMORRHOIDAL SUPPOSITORIES [Suspect]

REACTIONS (1)
  - HAEMORRHOIDAL HAEMORRHAGE [None]
